FAERS Safety Report 16587809 (Version 6)
Quarter: 2019Q4

REPORT INFORMATION
  Report Type: Report from Study
  Country: JP (occurrence: JP)
  Receive Date: 20190717
  Receipt Date: 20191127
  Transmission Date: 20200122
  Serious: Yes (Hospitalization, Other)
  Sender: FDA-Public Use
  Company Number: JP-009507513-1904JPN000451J

PATIENT
  Age: 68 Year
  Sex: Female
  Weight: 41 kg

DRUGS (3)
  1. KEYTRUDA [Suspect]
     Active Substance: PEMBROLIZUMAB
     Dosage: 200 MILLIGRAM, Q3W
     Route: 041
     Dates: start: 20190807, end: 20190807
  2. KEYTRUDA [Suspect]
     Active Substance: PEMBROLIZUMAB
     Indication: ENDOMETRIAL CANCER
     Dosage: 200 MILLIGRAM, Q3W
     Route: 041
     Dates: start: 20190327, end: 20190710
  3. KEYTRUDA [Suspect]
     Active Substance: PEMBROLIZUMAB
     Dosage: 200 MILLIGRAM, Q3W
     Route: 041
     Dates: start: 20190918, end: 20190918

REACTIONS (8)
  - Decreased activity [Unknown]
  - Diarrhoea [Unknown]
  - Urinary tract infection [Unknown]
  - Nausea [Recovered/Resolved]
  - Off label use [Unknown]
  - Diarrhoea [Recovered/Resolved]
  - Ileus [Recovered/Resolved]
  - Pyrexia [Recovered/Resolved]

NARRATIVE: CASE EVENT DATE: 2019
